FAERS Safety Report 9565982 (Version 2)
Quarter: 2014Q3

REPORT INFORMATION
  Report Type: Spontaneous
  Country: US (occurrence: US)
  Receive Date: 20130930
  Receipt Date: 20140813
  Transmission Date: 20150326
  Serious: Yes (Hospitalization, Other)
  Sender: FDA-Public Use
  Company Number: US-009507513-1309USA013640

PATIENT
  Sex: Female

DRUGS (1)
  1. NUVARING [Suspect]
     Active Substance: ETHINYL ESTRADIOL\ETONOGESTREL
     Indication: CONTRACEPTION
     Dosage: UNK
     Route: 067
     Dates: start: 200710, end: 20111205

REACTIONS (20)
  - Pulmonary embolism [Unknown]
  - Blood glucose increased [Unknown]
  - Methylenetetrahydrofolate reductase gene mutation [Unknown]
  - Maternal exposure before pregnancy [Recovered/Resolved]
  - Uterine dilation and curettage [Unknown]
  - Uterine haemorrhage [Unknown]
  - Hypertension [Unknown]
  - Deep vein thrombosis [Unknown]
  - Wrist surgery [Unknown]
  - Female sterilisation [Unknown]
  - Drug ineffective [Unknown]
  - Metabolic acidosis [Unknown]
  - Back pain [Not Recovered/Not Resolved]
  - Endometriosis [Unknown]
  - Spinal fusion surgery [Unknown]
  - Abortion missed [Recovered/Resolved]
  - Hyponatraemia [Unknown]
  - Hyperlipidaemia [Unknown]
  - Uterine dilation and curettage [Unknown]
  - Transient ischaemic attack [Unknown]

NARRATIVE: CASE EVENT DATE: 201001
